FAERS Safety Report 9947020 (Version 1)
Quarter: 2014Q1

REPORT INFORMATION
  Report Type: Report from Study
  Country: US (occurrence: US)
  Receive Date: 20140303
  Receipt Date: 20140303
  Transmission Date: 20141002
  Serious: No
  Sender: FDA-Public Use
  Company Number: US-ABBVIE-13P-163-1063987-00

PATIENT
  Age: 45 Year
  Sex: Female
  Weight: 59.93 kg

DRUGS (2)
  1. HUMIRA [Suspect]
     Indication: COLITIS ULCERATIVE
     Route: 058
     Dates: start: 201210, end: 201302
  2. CIMZIA [Concomitant]
     Indication: COLITIS ULCERATIVE
     Dates: start: 201303

REACTIONS (6)
  - Drug ineffective [Recovering/Resolving]
  - Frequent bowel movements [Recovering/Resolving]
  - Decreased appetite [Recovering/Resolving]
  - Weight decreased [Recovering/Resolving]
  - Muscle spasms [Recovered/Resolved]
  - Gastrointestinal inflammation [Recovering/Resolving]
